FAERS Safety Report 5580453-6 (Version None)
Quarter: 2008Q1

REPORT INFORMATION
  Report Type: 
  Country: None (occurrence: None)
  Receive Date: 20080103
  Receipt Date: 20070723
  Transmission Date: 20080703
  Serious: Yes (Other)
  Sender: FDA-Public Use
  Company Number: US-ASTRAZENECA-2006UW03012

PATIENT
  Age: 519 Month
  Sex: Female
  Weight: 129.5 kg

DRUGS (12)
  1. SEROQUEL [Suspect]
     Indication: BIPOLAR DISORDER
     Route: 048
     Dates: start: 20020901
  2. SEROQUEL [Suspect]
     Indication: BORDERLINE PERSONALITY DISORDER
     Route: 048
     Dates: start: 20020901
  3. FEN PHEN [Concomitant]
     Dates: start: 19960101, end: 19970101
  4. RISPERDAL [Concomitant]
  5. DEPAKOTE [Concomitant]
     Dates: start: 20030101
  6. REMERON [Concomitant]
  7. EFFEXOR [Concomitant]
  8. PROZAC [Concomitant]
  9. WELLBUTRIN [Concomitant]
  10. BUSPAR [Concomitant]
  11. TRAZODONE HCL [Concomitant]
  12. AMBIEN [Concomitant]

REACTIONS (25)
  - BLOOD MAGNESIUM DECREASED [None]
  - BRONCHITIS [None]
  - CARDIOMEGALY [None]
  - CERVICAL DYSPLASIA [None]
  - CHEST PAIN [None]
  - CONTUSION [None]
  - CORNEAL DISORDER [None]
  - DIABETES MELLITUS [None]
  - DYSFUNCTIONAL UTERINE BLEEDING [None]
  - DYSPNOEA [None]
  - EPISTAXIS [None]
  - FATIGUE [None]
  - FLANK PAIN [None]
  - HOT FLUSH [None]
  - HYPERSENSITIVITY [None]
  - INJURY [None]
  - MIGRAINE [None]
  - MOVEMENT DISORDER [None]
  - MUSCLE SPASMS [None]
  - MUSCULOSKELETAL DISORDER [None]
  - NASAL DISCOMFORT [None]
  - OSTEOARTHRITIS [None]
  - ROAD TRAFFIC ACCIDENT [None]
  - URINARY TRACT INFECTION [None]
  - WEIGHT INCREASED [None]
